FAERS Safety Report 7507645-0 (Version None)
Quarter: 2011Q2

REPORT INFORMATION
  Report Type: 
  Country: None (occurrence: None)
  Receive Date: 20110527
  Receipt Date: 20110513
  Transmission Date: 20111010
  Serious: Yes (Hospitalization, Other)
  Sender: FDA-Public Use
  Company Number: US-RANBAXY-2011RR-42530

PATIENT
  Sex: Female

DRUGS (7)
  1. LEVAQUIN [Suspect]
     Indication: SINUSITIS
     Dosage: UNK
     Route: 048
     Dates: start: 20030101, end: 20051220
  2. LEVAQUIN [Suspect]
     Dosage: UNK
     Route: 048
     Dates: start: 20031017
  3. CIPROFLOXACIN [Suspect]
     Indication: URINARY TRACT INFECTION
     Dosage: UNK
     Route: 065
     Dates: start: 20040102
  4. LEVAQUIN [Suspect]
     Dosage: UNK
     Route: 048
     Dates: start: 20031103
  5. LEVAQUIN [Suspect]
     Dosage: UNK
     Route: 048
     Dates: start: 20031022
  6. LEVAQUIN [Suspect]
     Dosage: UNK
     Route: 048
     Dates: start: 20031224
  7. METHYLPREDNISOLONE [Suspect]
     Indication: PRODUCT USED FOR UNKNOWN INDICATION
     Dosage: UNK
     Route: 065
     Dates: start: 20031022

REACTIONS (2)
  - ROTATOR CUFF SYNDROME [None]
  - PLANTAR FASCIITIS [None]
